FAERS Safety Report 7753508-5 (Version None)
Quarter: 2011Q3

REPORT INFORMATION
  Report Type: 
  Country: None (occurrence: None)
  Receive Date: 20110915
  Receipt Date: 20110913
  Transmission Date: 20111222
  Serious: No
  Sender: FDA-Public Use
  Company Number: US-PFIZER INC-2011172092

PATIENT
  Sex: Male

DRUGS (4)
  1. CYMBALTA [Concomitant]
     Indication: DEPRESSION
  2. OXYCONTIN [Concomitant]
     Indication: PAIN
     Dosage: UNK
  3. CELEBREX [Suspect]
     Indication: OSTEOARTHRITIS
     Dosage: 200 MG, 2X/DAY
     Route: 048
     Dates: start: 20090101
  4. CYMBALTA [Concomitant]
     Indication: PAIN
     Dosage: UNK

REACTIONS (2)
  - PAIN [None]
  - ARTHRALGIA [None]
